FAERS Safety Report 23020566 (Version 1)
Quarter: 2023Q4

REPORT INFORMATION
  Report Type: Report from Study
  Country: US (occurrence: US)
  Receive Date: 20231003
  Receipt Date: 20231003
  Transmission Date: 20240110
  Serious: Yes (Other)
  Sender: FDA-Public Use
  Company Number: US-ABBVIE-5429116

PATIENT
  Age: 20 Year
  Sex: Female

DRUGS (1)
  1. HUMIRA [Suspect]
     Active Substance: ADALIMUMAB
     Indication: Hidradenitis
     Dosage: TIME INTERVAL: TOTAL: ONCE
     Route: 058
     Dates: start: 20230921, end: 20230921

REACTIONS (6)
  - Contusion [Unknown]
  - Dysuria [Unknown]
  - Pollakiuria [Unknown]
  - Syncope [Unknown]
  - Urinary retention [Unknown]
  - Bacterial infection [Unknown]

NARRATIVE: CASE EVENT DATE: 20230922
